FAERS Safety Report 9098461 (Version 1)
Quarter: 2013Q1

REPORT INFORMATION
  Report Type: Spontaneous
  Country: BR (occurrence: BR)
  Receive Date: 20130213
  Receipt Date: 20130213
  Transmission Date: 20140127
  Serious: Yes (Other)
  Sender: FDA-Public Use
  Company Number: PHHY2013BR013072

PATIENT
  Age: 81 Year
  Sex: Female

DRUGS (11)
  1. EXELON [Suspect]
     Indication: DEMENTIA ALZHEIMER^S TYPE
     Dosage: 2 DF, DAILY
     Route: 048
     Dates: start: 2004
  2. ALOIS [Concomitant]
     Dosage: 2 DF, DAILY (MORNING)
     Route: 048
     Dates: start: 201209
  3. PROLOPA [Concomitant]
     Indication: PARKINSON^S DISEASE
     Dosage: 4 DF, BID (2 AT MORNING AND 2 AT NIGHT)
     Route: 048
  4. SIMVASTATIN [Concomitant]
     Indication: BLOOD CHOLESTEROL INCREASED
     Dosage: 0.5 DF, DAILY (AT NIGHT)
     Route: 048
  5. GLIFAGE [Concomitant]
     Indication: DIABETES MELLITUS
     Dosage: 1 DF, BID (MORNING AND NIGHT)
  6. ENALAPRIL [Concomitant]
     Indication: HYPERTENSION
     Dosage: 1 DF, DAILY (MORNING)
  7. LOSARTAN [Concomitant]
     Indication: HYPERTENSION
     Dosage: 1 DF, DAILY (AT NIGHT)
  8. CALCIUM CITRATE/VITAMIN D [Concomitant]
     Indication: BONE DISORDER
     Dosage: 1 DF, DAILY
  9. VITAMIIN C [Concomitant]
     Indication: INFLUENZA
     Dosage: 1 DF, DAILY
  10. NEOZINE [Concomitant]
     Indication: HALLUCINATION
     Dosage: 2 DF, BID
     Dates: start: 201209
  11. LABIRIN [Concomitant]
     Indication: DIZZINESS
     Dosage: 1 DF, DAILY (AT NIGHT)

REACTIONS (5)
  - Parkinson^s disease [Unknown]
  - Gait disturbance [Unknown]
  - Tremor [Unknown]
  - Hydrocephalus [Recovered/Resolved]
  - Micturition urgency [Recovered/Resolved]
